FAERS Safety Report 25118370 (Version 1)
Quarter: 2025Q1

REPORT INFORMATION
  Report Type: Spontaneous
  Country: US (occurrence: US)
  Receive Date: 20250325
  Receipt Date: 20250325
  Transmission Date: 20250409
  Serious: No
  Sender: AVERITAS
  Company Number: US-GRUNENTHAL-2025-104112

PATIENT
  Sex: Female

DRUGS (1)
  1. QUTENZA [Suspect]
     Active Substance: CAPSAICIN
     Route: 065

REACTIONS (6)
  - Occupational exposure to product [Unknown]
  - Burning sensation [Unknown]
  - Paraesthesia [Unknown]
  - Exposure via eye contact [Unknown]
  - Exposure via skin contact [Unknown]
  - Exposure via mucosa [Unknown]
